FAERS Safety Report 10008750 (Version 1)
Quarter: 2014Q1

REPORT INFORMATION
  Report Type: Spontaneous
  Country: US (occurrence: US)
  Receive Date: 20140312
  Receipt Date: 20140312
  Transmission Date: 20141002
  Serious: No
  Sender: FDA-Public Use
  Company Number: US-INCYTE CORPORATION-2012IN000621

PATIENT
  Sex: Male

DRUGS (7)
  1. JAKAFI [Suspect]
     Indication: MYELOFIBROSIS
     Dosage: 20 MG, BID
     Route: 048
     Dates: start: 20120106
  2. ASPIRIN [Concomitant]
     Dosage: 81 MG, QD
     Route: 048
  3. VITAMIN D [Concomitant]
     Dosage: 50.000 IU, WEEK
  4. PROSTATE MEDICATION [Concomitant]
     Dosage: UNK
  5. MEDICATION FOR ACIDITY IN BLOOD [Concomitant]
     Dosage: UNK
  6. CHOLESTEROL- AND TRIGLYCERIDE REDUCERS [Concomitant]
     Dosage: UNK
  7. EXCEDRIN OTC [Concomitant]
     Dosage: UNK, QD PM

REACTIONS (1)
  - Tenderness [Unknown]
